FAERS Safety Report 25481780 (Version 1)
Quarter: 2025Q2

REPORT INFORMATION
  Report Type: Spontaneous
  Country: US (occurrence: US)
  Receive Date: 20250626
  Receipt Date: 20250626
  Transmission Date: 20250716
  Serious: No
  Sender: ELI LILLY AND COMPANY
  Company Number: US-ELI_LILLY_AND_COMPANY-US202506022304

PATIENT

DRUGS (1)
  1. MOUNJARO [Suspect]
     Active Substance: TIRZEPATIDE
     Indication: Product used for unknown indication
     Route: 065
     Dates: start: 202408

REACTIONS (5)
  - Hyperhidrosis [Unknown]
  - Chills [Unknown]
  - Muscle spasms [Unknown]
  - Diarrhoea [Unknown]
  - Vomiting [Unknown]
